FAERS Safety Report 8573835-1 (Version None)
Quarter: 2012Q3

REPORT INFORMATION
  Report Type: 
  Country: None (occurrence: None)
  Receive Date: 20120806
  Receipt Date: 20110914
  Transmission Date: 20120928
  Serious: No
  Sender: FDA-Public Use
  Company Number: US-GLAXOSMITHKLINE-A0944622A

PATIENT
  Age: 38 Year
  Sex: Female

DRUGS (6)
  1. SINGULAIR [Concomitant]
  2. NEXIUM [Concomitant]
  3. ATENOLOL [Concomitant]
  4. ZYRTEC [Concomitant]
  5. NASONEX [Concomitant]
  6. FLUTICASONE PROPIONATE [Suspect]
     Indication: ASTHMA
     Dosage: 1PUFF TWICE PER DAY
     Route: 055
     Dates: start: 20110101

REACTIONS (1)
  - CANDIDIASIS [None]
